FAERS Safety Report 7250967-1 (Version None)
Quarter: 2011Q1

REPORT INFORMATION
  Report Type: 
  Country: None (occurrence: None)
  Receive Date: 20110128
  Receipt Date: 20110124
  Transmission Date: 20110831
  Serious: Yes (Hospitalization, Congenital Anomaly)
  Sender: FDA-Public Use
  Company Number: A0909866A

PATIENT
  Sex: Female
  Weight: 3.6 kg

DRUGS (1)
  1. PAXIL [Suspect]
     Route: 064

REACTIONS (6)
  - PORTAL SHUNT [None]
  - SPLENOMEGALY [None]
  - DRUG EXPOSURE DURING PREGNANCY [None]
  - CONGENITAL HEPATOBILIARY ANOMALY [None]
  - CONGENITAL SCOLIOSIS [None]
  - CARDIAC MURMUR [None]
